FAERS Safety Report 7416408-6 (Version None)
Quarter: 2011Q2

REPORT INFORMATION
  Report Type: 
  Country: None (occurrence: None)
  Receive Date: 20110414
  Receipt Date: 20110404
  Transmission Date: 20111010
  Serious: Yes (Other)
  Sender: FDA-Public Use
  Company Number: CA-GENENTECH-316397

PATIENT

DRUGS (3)
  1. INTERFERON ALFA [Suspect]
     Indication: B-CELL LYMPHOMA RECURRENT
     Dosage: UNK
     Route: 058
  2. RITUXIMAB [Suspect]
     Dosage: 375 MG/M2, UNK
     Route: 065
  3. RITUXIMAB [Suspect]
     Indication: B-CELL LYMPHOMA RECURRENT
     Dosage: 375 MG/M2, UNK
     Route: 065

REACTIONS (13)
  - HYPOGAMMAGLOBULINAEMIA [None]
  - ACUTE MYELOID LEUKAEMIA [None]
  - HERPES ZOSTER [None]
  - ACUTE LYMPHOCYTIC LEUKAEMIA [None]
  - SQUAMOUS CELL CARCINOMA [None]
  - NON-SMALL CELL LUNG CANCER [None]
  - ADENOCARCINOMA [None]
  - MYELODYSPLASTIC SYNDROME [None]
  - BASAL CELL CARCINOMA [None]
  - RESPIRATORY DISORDER [None]
  - INTERSTITIAL LUNG DISEASE [None]
  - THYROID CANCER [None]
  - DIFFUSE LARGE B-CELL LYMPHOMA [None]
